FAERS Safety Report 4630320-7 (Version None)
Quarter: 2005Q2

REPORT INFORMATION
  Report Type: 
  Country: None (occurrence: None)
  Receive Date: 20050408
  Receipt Date: 20041215
  Transmission Date: 20051028
  Serious: Yes (Hospitalization)
  Sender: FDA-Public Use
  Company Number: PHEH2004US13342

PATIENT
  Sex: Female

DRUGS (1)
  1. ZELNORM [Suspect]
     Indication: IRRITABLE BOWEL SYNDROME

REACTIONS (6)
  - ABDOMINAL PAIN LOWER [None]
  - ABSCESS INTESTINAL [None]
  - DIVERTICULITIS [None]
  - INTESTINAL PERFORATION [None]
  - POSTOPERATIVE INFECTION [None]
  - SURGERY [None]
